FAERS Safety Report 5402606-X (Version None)
Quarter: 2007Q3

REPORT INFORMATION
  Report Type: 
  Country: None (occurrence: None)
  Receive Date: 20070730
  Receipt Date: 20070722
  Transmission Date: 20080115
  Serious: Yes (Other)
  Sender: FDA-Public Use
  Company Number: 07H-163-0312910-00

PATIENT
  Age: 44 Year
  Sex: Female

DRUGS (10)
  1. MEPERIDINE HCL [Suspect]
     Indication: BREAKTHROUGH PAIN
     Dosage: AS REQUIRED, INTRAVENOUS
     Route: 042
  2. CITALOPRAM HYDROBROMIDE [Suspect]
     Indication: DEPRESSION
     Dosage: 20 MG, DAILY, ORAL
     Route: 048
  3. FENTANYL [Suspect]
     Indication: DRUG USE FOR UNKNOWN INDICATION
     Dosage: 50 MCG/HR, EVERY 72 HOURS, TRANSDERMAL
     Route: 062
  4. HYDROMORPHONE HCL [Concomitant]
  5. HYRDOCODONE BITARTRATE-ACETAMINOPHEN (VICODIN) [Concomitant]
  6. PROMETHAZINE [Concomitant]
  7. GATIFLOXACIN [Concomitant]
  8. ZOLPIDEM TARTRATE [Concomitant]
  9. LANSOPRAZOLE [Concomitant]
  10. ENOXAPARIN SODIUM [Concomitant]

REACTIONS (12)
  - AGITATION [None]
  - DEPRESSION [None]
  - DISORIENTATION [None]
  - DRUG INTERACTION [None]
  - HYPERTENSION [None]
  - ILLUSION [None]
  - NAUSEA [None]
  - PARANOIA [None]
  - PYREXIA [None]
  - SEROTONIN SYNDROME [None]
  - TACHYCARDIA [None]
  - TACHYPNOEA [None]
